FAERS Safety Report 25218221 (Version 2)
Quarter: 2025Q3

REPORT INFORMATION
  Report Type: Spontaneous
  Country: US (occurrence: US)
  Receive Date: 20250421
  Receipt Date: 20250811
  Transmission Date: 20251021
  Serious: No
  Sender: ROCHE
  Company Number: US-ROCHE-10000262296

PATIENT
  Age: 47 Year
  Sex: Male

DRUGS (1)
  1. HEMLIBRA [Suspect]
     Active Substance: EMICIZUMAB-KXWH
     Indication: Factor VIII deficiency
     Dosage: STRENGTH- 60MG/0.4ML
     Route: 058
     Dates: start: 202502

REACTIONS (3)
  - Haemorrhage [Unknown]
  - Colitis [Unknown]
  - Arthritis infective [Unknown]

NARRATIVE: CASE EVENT DATE: 20250327
